FAERS Safety Report 6094832-4 (Version None)
Quarter: 2009Q1

REPORT INFORMATION
  Report Type: 
  Country: None (occurrence: None)
  Receive Date: 20090225
  Receipt Date: 20080904
  Transmission Date: 20090719
  Serious: Yes (Other)
  Sender: FDA-Public Use
  Company Number: DSA_32375_2008

PATIENT
  Sex: Female

DRUGS (3)
  1. VASOTEC [Suspect]
     Indication: BLOOD PRESSURE INCREASED
     Dosage: (DF)
     Dates: start: 19900101, end: 19900101
  2. CALAN [Suspect]
     Indication: BLOOD PRESSURE INCREASED
     Dosage: (DF)
     Dates: start: 19900101
  3. PROCARDIA [Suspect]
     Indication: BLOOD PRESSURE INCREASED
     Dosage: (DF)
     Dates: start: 19900101

REACTIONS (5)
  - HEART RATE INCREASED [None]
  - HEART RATE IRREGULAR [None]
  - HYPERSENSITIVITY [None]
  - PALPITATIONS [None]
  - RASH [None]
